FAERS Safety Report 17933219 (Version 2)
Quarter: 2020Q3

REPORT INFORMATION
  Report Type: Spontaneous
  Country: US (occurrence: US)
  Receive Date: 20200623
  Receipt Date: 20200720
  Transmission Date: 20201103
  Serious: No
  Sender: FDA-Public Use
  Company Number: US-PFIZER INC-2020239677

PATIENT
  Age: 66 Year
  Sex: Female
  Weight: 59 kg

DRUGS (2)
  1. ESTRADIOL. [Suspect]
     Active Substance: ESTRADIOL
     Indication: VAGINAL INFECTION
  2. ESTRADIOL. [Suspect]
     Active Substance: ESTRADIOL
     Indication: VULVOVAGINAL DRYNESS
     Dosage: UNK, 2X/WEEK (0.01% 1 GRAM APPLY TWICE A WEEK)
     Dates: start: 201809

REACTIONS (4)
  - Product physical issue [Unknown]
  - Poor quality product administered [Unknown]
  - Drug ineffective for unapproved indication [Unknown]
  - Off label use [Unknown]
